FAERS Safety Report 4656231-9 (Version None)
Quarter: 2005Q2

REPORT INFORMATION
  Report Type: 
  Country: None (occurrence: None)
  Receive Date: 20050509
  Receipt Date: 20050307
  Transmission Date: 20051028
  Serious: No
  Sender: FDA-Public Use
  Company Number: US-GLAXOSMITHKLINE-A0548623A

PATIENT
  Sex: Male

DRUGS (5)
  1. AVANDAMET [Suspect]
     Route: 048
  2. AMARYL [Concomitant]
  3. ALTACE [Concomitant]
  4. PRAVACHOL [Concomitant]
  5. ZETIA [Concomitant]

REACTIONS (3)
  - BLOOD GLUCOSE DECREASED [None]
  - HYPERHIDROSIS [None]
  - TREMOR [None]
